FAERS Safety Report 6774537-4 (Version None)
Quarter: 2010Q2

REPORT INFORMATION
  Report Type: 
  Country: None (occurrence: None)
  Receive Date: 20100617
  Receipt Date: 20090504
  Transmission Date: 20101027
  Serious: No
  Sender: FDA-Public Use
  Company Number: A0782341A

PATIENT
  Sex: Female

DRUGS (2)
  1. ZYBAN [Suspect]
     Dosage: 150MG PER DAY
     Route: 048
     Dates: start: 20090423
  2. NO CONCURRENT MEDICATION [Concomitant]

REACTIONS (1)
  - ANXIETY [None]
